FAERS Safety Report 19010137 (Version 1)
Quarter: 2021Q1

REPORT INFORMATION
  Report Type: Spontaneous
  Country: US (occurrence: US)
  Receive Date: 20210316
  Receipt Date: 20210316
  Transmission Date: 20210420
  Serious: Yes (Hospitalization)
  Sender: FDA-Public Use
  Company Number: US-BEH-2021129469

PATIENT
  Age: 60 Year
  Sex: Female

DRUGS (18)
  1. RITUXAN [Concomitant]
     Active Substance: RITUXIMAB
     Dosage: 500 MG/50 ML
     Route: 065
  2. FENOFIBRATE. [Concomitant]
     Active Substance: FENOFIBRATE
     Dosage: 160 MILLIGRAM
     Route: 065
  3. VENTOLIN HFA [Concomitant]
     Active Substance: ALBUTEROL SULFATE
     Route: 065
  4. FAMOTIDINE. [Concomitant]
     Active Substance: FAMOTIDINE
     Route: 065
  5. GABAPENTIN. [Concomitant]
     Active Substance: GABAPENTIN
     Dosage: 600 MILLIGRAM
     Route: 065
  6. METOPROLOL. [Concomitant]
     Active Substance: METOPROLOL
     Dosage: 100 MILLIGRAM
     Route: 065
  7. BIOTIN [Concomitant]
     Active Substance: BIOTIN
     Route: 065
  8. NASACORT ALLERGY 24HR [Concomitant]
     Active Substance: TRIAMCINOLONE ACETONIDE
     Dosage: 55 MICROGRAM
     Route: 065
  9. SYMBICORT [Concomitant]
     Active Substance: BUDESONIDE\FORMOTEROL FUMARATE DIHYDRATE
     Dosage: 160?4.4 MCG
     Route: 065
  10. FEXOFENADINE [Concomitant]
     Active Substance: FEXOFENADINE HYDROCHLORIDE
     Dosage: 180 MILLIGRAM
     Route: 065
  11. ASPIRIN (E.C.) [Concomitant]
     Active Substance: ASPIRIN
     Route: 065
  12. PREDNISONE. [Concomitant]
     Active Substance: PREDNISONE
     Route: 065
  13. VITAMIN E AL [Concomitant]
     Active Substance: TOCOPHEROL
     Route: 065
  14. ATORVASTATIN [Concomitant]
     Active Substance: ATORVASTATIN
     Dosage: 40 MILLIGRAM
     Route: 065
  15. DULOXETINE. [Concomitant]
     Active Substance: DULOXETINE
     Dosage: 30 MILLIGRAM
     Route: 065
  16. METHOTREXATE. [Concomitant]
     Active Substance: METHOTREXATE
     Dosage: 2.5 MILLIGRAM
     Route: 065
  17. HIZENTRA [Suspect]
     Active Substance: HUMAN IMMUNOGLOBULIN G
     Indication: CHRONIC INFLAMMATORY DEMYELINATING POLYRADICULONEUROPATHY
     Dosage: 25 GRAM, QW
     Route: 058
  18. MYCOPHENOLAT 1A PHARMA [Concomitant]
     Dosage: 500 MILLIGRAM
     Route: 065

REACTIONS (1)
  - Fall [Recovered/Resolved]

NARRATIVE: CASE EVENT DATE: 2021
